FAERS Safety Report 7484242-7 (Version None)
Quarter: 2011Q2

REPORT INFORMATION
  Report Type: 
  Country: None (occurrence: None)
  Receive Date: 20110517
  Receipt Date: 20110505
  Transmission Date: 20111010
  Serious: Yes (Other)
  Sender: FDA-Public Use
  Company Number: PHHY2011DE39553

PATIENT
  Age: 85 Year
  Sex: Female

DRUGS (2)
  1. ETIDRONATE DISODIUM [Suspect]
     Dosage: UNK
     Route: 048
     Dates: start: 20011201, end: 20030601
  2. PAMIDRONATE DISODIUM [Suspect]
     Dosage: UNK
     Route: 042
     Dates: start: 20030601, end: 20060316

REACTIONS (2)
  - OSTEONECROSIS OF JAW [None]
  - ABSCESS JAW [None]
